FAERS Safety Report 8159257-6 (Version None)
Quarter: 2012Q1

REPORT INFORMATION
  Report Type: 
  Country: None (occurrence: None)
  Receive Date: 20120103
  Receipt Date: 20111015
  Transmission Date: 20120608
  Serious: No
  Sender: FDA-Public Use
  Company Number: AE-2011-002355

PATIENT
  Age: 47 Year
  Sex: Male
  Weight: 107.9561 kg

DRUGS (5)
  1. RIBAVIRIN [Concomitant]
  2. TEMAZEPAM [Concomitant]
  3. METFORMIN HCL [Concomitant]
  4. INCIVEK [Suspect]
     Dosage: 2250 MG (750 MG, 1 IN 8 HR), ORAL
     Route: 048
     Dates: start: 20111007
  5. PEGASYS [Concomitant]

REACTIONS (6)
  - HEADACHE [None]
  - NAUSEA [None]
  - DEPRESSED MOOD [None]
  - CONSTIPATION [None]
  - VOMITING [None]
  - WEIGHT DECREASED [None]
